FAERS Safety Report 7826608-9 (Version None)
Quarter: 2011Q4

REPORT INFORMATION
  Report Type: 
  Country: None (occurrence: None)
  Receive Date: 20111020
  Receipt Date: 20111013
  Transmission Date: 20120403
  Serious: Yes (Death, Life-Threatening, Hospitalization)
  Sender: FDA-Public Use
  Company Number: JP-CELGENEUS-087-50794-11090909

PATIENT
  Sex: Female
  Weight: 62 kg

DRUGS (15)
  1. TENORMIN [Concomitant]
     Route: 065
     Dates: end: 20110826
  2. MEROPENEM [Concomitant]
     Route: 065
     Dates: start: 20110825, end: 20110902
  3. ATELEC [Concomitant]
     Route: 065
     Dates: end: 20110826
  4. ALLOPURINOL [Concomitant]
     Route: 065
     Dates: start: 20110430, end: 20110826
  5. ZYRTEC [Concomitant]
     Route: 065
     Dates: end: 20110826
  6. RABEPRAZOLE SODIUM [Concomitant]
     Route: 065
     Dates: end: 20110826
  7. CIBENOL [Concomitant]
     Route: 065
     Dates: end: 20110826
  8. DIFLUCAN [Concomitant]
     Route: 065
     Dates: start: 20110430, end: 20110826
  9. AZACITIDINE [Suspect]
     Dosage: 100 MILLIGRAM
     Route: 041
     Dates: start: 20110430, end: 20110506
  10. MAXIPIME [Concomitant]
     Indication: PYREXIA
     Route: 065
     Dates: start: 20110812, end: 20110824
  11. AZACITIDINE [Suspect]
     Dosage: 100 MILLIGRAM
     Route: 041
     Dates: start: 20110714, end: 20110720
  12. VANCOMYCIN HYCHLORIDE [Concomitant]
     Route: 065
     Dates: start: 20110827, end: 20110902
  13. VALSARTAN [Concomitant]
     Route: 065
     Dates: end: 20110826
  14. LEVOFLOXACIN [Concomitant]
     Route: 065
     Dates: start: 20110430, end: 20110826
  15. SOLDACTONE [Concomitant]
     Route: 065
     Dates: start: 20110824, end: 20110903

REACTIONS (5)
  - CARDIAC FAILURE [None]
  - PNEUMONIA [None]
  - NEUTROPHIL COUNT DECREASED [None]
  - WHITE BLOOD CELL COUNT DECREASED [None]
  - FEBRILE NEUTROPENIA [None]
